FAERS Safety Report 24095579 (Version 3)
Quarter: 2024Q3

REPORT INFORMATION
  Report Type: Spontaneous
  Country: KR (occurrence: KR)
  Receive Date: 20240716
  Receipt Date: 20240812
  Transmission Date: 20241017
  Serious: Yes (Death, Life-Threatening, Hospitalization, Other)
  Sender: ACCORD
  Company Number: KR-Accord-434039

PATIENT
  Age: 64 Year
  Sex: Male
  Weight: 64.7 kg

DRUGS (30)
  1. CARBOPLATIN [Suspect]
     Active Substance: CARBOPLATIN
     Indication: Non-small cell lung cancer metastatic
     Dosage: 6 AUC, 1Q3W, C1
     Route: 042
     Dates: start: 20240624, end: 20240624
  2. PACLITAXEL [Suspect]
     Active Substance: PACLITAXEL
     Indication: Non-small cell lung cancer metastatic
     Dosage: 1Q3W, C1
     Route: 042
     Dates: start: 20240624, end: 20240624
  3. PEMBROLIZUMAB [Suspect]
     Active Substance: PEMBROLIZUMAB
     Indication: Non-small cell lung cancer metastatic
     Dosage: 1Q3W, C1
     Route: 042
     Dates: start: 20240624, end: 20240624
  4. ATORVASTATIN\EZETIMIBE [Concomitant]
     Active Substance: ATORVASTATIN\EZETIMIBE
     Dates: start: 202405
  5. EMPAGLIFLOZIN [Concomitant]
     Active Substance: EMPAGLIFLOZIN
     Dates: start: 202405
  6. TENELIGLIPTIN [Concomitant]
     Active Substance: TENELIGLIPTIN
     Dates: start: 202405
  7. METFORMIN HYDROCHLORIDE [Concomitant]
     Active Substance: METFORMIN HYDROCHLORIDE
     Dates: start: 202405
  8. Insulin degludec, Insulin aspart [Concomitant]
     Dates: start: 202403
  9. TELMISARTAN [Concomitant]
     Active Substance: TELMISARTAN
     Dates: start: 202405
  10. DEXAMETHASONE [Concomitant]
     Active Substance: DEXAMETHASONE
     Dates: start: 20240624, end: 20240624
  11. CHLORPHENIRAMINE MALEATE [Concomitant]
     Active Substance: CHLORPHENIRAMINE MALEATE
     Dates: start: 20240624, end: 20240624
  12. CIMETIDINE [Concomitant]
     Active Substance: CIMETIDINE
     Dates: start: 20240624, end: 20240624
  13. HYDROCORTISONE SODIUM SUCCINATE [Concomitant]
     Active Substance: HYDROCORTISONE SODIUM SUCCINATE
     Dates: start: 20240624, end: 20240624
  14. NETUPITANT\PALONOSETRON HYDROCHLORIDE [Concomitant]
     Active Substance: NETUPITANT\PALONOSETRON HYDROCHLORIDE
     Dates: start: 20240624, end: 20240624
  15. ACETAMINOPHEN [Concomitant]
     Active Substance: ACETAMINOPHEN
     Dates: start: 20240624
  16. NALOXONE HYDROCHLORIDE\OXYCODONE HYDROCHLORIDE [Concomitant]
     Active Substance: NALOXONE HYDROCHLORIDE\OXYCODONE HYDROCHLORIDE
     Dates: start: 20240612
  17. ACECLOFENAC [Concomitant]
     Active Substance: ACECLOFENAC
     Dates: start: 20240612
  18. PREGABALIN [Concomitant]
     Active Substance: PREGABALIN
     Dates: start: 20240612
  19. TEGOPRAZAN [Concomitant]
     Active Substance: TEGOPRAZAN
     Dates: start: 20240612
  20. ACETAMINOPHEN\TRAMADOL [Concomitant]
     Active Substance: ACETAMINOPHEN\TRAMADOL
     Dates: start: 20240101, end: 20240611
  21. LOXOPROFEN SODIUM [Concomitant]
     Active Substance: LOXOPROFEN SODIUM
     Dates: start: 20240101, end: 20240611
  22. FAMOTIDINE [Concomitant]
     Active Substance: FAMOTIDINE
     Dates: start: 20240101, end: 20240611
  23. CODEINE PHOSPHATE [Concomitant]
     Active Substance: CODEINE PHOSPHATE
     Dates: start: 20240605, end: 20240607
  24. CEFDITOREN PIVOXIL [Concomitant]
     Active Substance: CEFDITOREN PIVOXIL
     Dates: start: 20240605, end: 20240607
  25. TRANEXAMIC ACID [Concomitant]
     Active Substance: TRANEXAMIC ACID
     Dates: start: 20240605, end: 20240607
  26. MIDAZOLAM [Concomitant]
     Active Substance: MIDAZOLAM
     Dates: start: 20240605, end: 20240605
  27. PROPOFOL [Concomitant]
     Active Substance: PROPOFOL
     Dates: start: 20240605, end: 20240605
  28. FLUMAZENIL [Concomitant]
     Active Substance: FLUMAZENIL
     Dates: start: 20240605, end: 20240605
  29. LIDOCAINE [Concomitant]
     Active Substance: LIDOCAINE
     Dates: start: 20240605, end: 20240605
  30. MOSAPRIDE CITRATE [Concomitant]
     Active Substance: MOSAPRIDE CITRATE
     Dates: start: 202401, end: 20240611

REACTIONS (1)
  - Cardiac arrest [Fatal]

NARRATIVE: CASE EVENT DATE: 20240628
